FAERS Safety Report 17770116 (Version 3)
Quarter: 2021Q3

REPORT INFORMATION
  Report Type: Report from Study
  Country: US (occurrence: US)
  Receive Date: 20200512
  Receipt Date: 20210819
  Transmission Date: 20211014
  Serious: Yes (Hospitalization)
  Sender: FDA-Public Use
  Company Number: US-MYLANLABS-2020M1047690

PATIENT
  Age: 64 Year
  Sex: Male
  Weight: 86.16 kg

DRUGS (1)
  1. GLATIRAMER ACETATE INJECTION [Suspect]
     Active Substance: GLATIRAMER ACETATE
     Indication: RELAPSING-REMITTING MULTIPLE SCLEROSIS
     Dosage: 40 MILLIGRAM, 3XW
     Route: 058

REACTIONS (8)
  - Anxiety [Unknown]
  - Loss of consciousness [Recovered/Resolved]
  - Feeling abnormal [Unknown]
  - Head injury [Recovering/Resolving]
  - Bladder disorder [Unknown]
  - Fall [Unknown]
  - Dizziness [Unknown]
  - Balance disorder [Unknown]

NARRATIVE: CASE EVENT DATE: 202002
